FAERS Safety Report 5886528-6 (Version None)
Quarter: 2008Q3

REPORT INFORMATION
  Report Type: 
  Country: None (occurrence: None)
  Receive Date: 20080917
  Receipt Date: 20080905
  Transmission Date: 20090109
  Serious: Yes (Death)
  Sender: FDA-Public Use
  Company Number: GB-WYE-G02118908

PATIENT
  Age: 15 Year
  Sex: Female

DRUGS (1)
  1. TAZOCIN [Suspect]
     Indication: SEPSIS
     Dosage: UNKNOWN

REACTIONS (2)
  - DRUG INEFFECTIVE [None]
  - SEPSIS [None]
